FAERS Safety Report 17446488 (Version 2)
Quarter: 2020Q2

REPORT INFORMATION
  Report Type: Spontaneous
  Country: US (occurrence: US)
  Receive Date: 20200221
  Receipt Date: 20200615
  Transmission Date: 20200713
  Serious: Yes (Other)
  Sender: FDA-Public Use
  Company Number: US-ASTRAZENECA-2020SE24171

PATIENT
  Age: 20602 Day
  Sex: Female
  Weight: 75.3 kg

DRUGS (11)
  1. LISINOPRIL. [Suspect]
     Active Substance: LISINOPRIL
     Indication: HYPERTENSION
     Route: 048
  2. CARBAMAZEPINE. [Concomitant]
     Active Substance: CARBAMAZEPINE
     Indication: EPILEPSY
     Route: 065
  3. METHOTREXATE. [Suspect]
     Active Substance: METHOTREXATE
     Route: 065
  4. HCTZ [Concomitant]
     Active Substance: HYDROCHLOROTHIAZIDE
     Indication: HYPERTENSION
     Route: 065
  5. HUMIRA [Suspect]
     Active Substance: ADALIMUMAB
     Indication: ANKYLOSING SPONDYLITIS
     Dosage: 40 MG/0.8 ML
     Route: 058
     Dates: start: 201710, end: 201712
  6. PRILOSEC [Suspect]
     Active Substance: OMEPRAZOLE MAGNESIUM
     Route: 048
  7. HUMIRA [Suspect]
     Active Substance: ADALIMUMAB
     Indication: ANKYLOSING SPONDYLITIS
     Dosage: 40 MG/0.8 ML
     Route: 058
     Dates: start: 2015, end: 201707
  8. HUMIRA [Suspect]
     Active Substance: ADALIMUMAB
     Indication: ANKYLOSING SPONDYLITIS
     Dosage: 40 MG/0.8 ML
     Route: 058
     Dates: start: 201801, end: 201803
  9. HUMIRA [Suspect]
     Active Substance: ADALIMUMAB
     Indication: ANKYLOSING SPONDYLITIS
     Dosage: CITRATE FREE
     Route: 058
     Dates: start: 201805
  10. PNEUMONIA SHOT [Concomitant]
     Active Substance: PNEUMOCOCCAL VACCINE POLYVALENT
     Route: 065
     Dates: start: 201712, end: 201810
  11. PNEUMONIA SHOT [Concomitant]
     Active Substance: PNEUMOCOCCAL VACCINE POLYVALENT
     Route: 065
     Dates: start: 201810

REACTIONS (30)
  - Tendonitis [Recovering/Resolving]
  - Iritis [Recovered/Resolved]
  - Arthralgia [Unknown]
  - Limb injury [Unknown]
  - Adnexal torsion [Recovered/Resolved]
  - Breast haemorrhage [Not Recovered/Not Resolved]
  - Hip fracture [Recovering/Resolving]
  - Femur fracture [Unknown]
  - Device loosening [Unknown]
  - Drug interaction [Recovering/Resolving]
  - Joint dislocation [Unknown]
  - Malaise [Unknown]
  - Pleurisy [Recovered/Resolved]
  - Inflammation [Unknown]
  - Bone development abnormal [Recovering/Resolving]
  - Post procedural infection [Unknown]
  - Tendon rupture [Recovering/Resolving]
  - Clavicle fracture [Recovered/Resolved]
  - Rash [Not Recovered/Not Resolved]
  - Drug ineffective [Unknown]
  - Ovarian disorder [Recovered/Resolved]
  - Ovarian neoplasm [Recovered/Resolved]
  - Gastric disorder [Recovering/Resolving]
  - Road traffic accident [Recovering/Resolving]
  - Fall [Recovering/Resolving]
  - Injection site pain [Recovered/Resolved]
  - Mammary duct ectasia [Not Recovered/Not Resolved]
  - Rotator cuff syndrome [Recovering/Resolving]
  - Pelvic mass [Recovered/Resolved]
  - Surgical failure [Recovering/Resolving]

NARRATIVE: CASE EVENT DATE: 2017
